FAERS Safety Report 6301125-6 (Version None)
Quarter: 2009Q3

REPORT INFORMATION
  Report Type: 
  Country: None (occurrence: None)
  Receive Date: 20090807
  Receipt Date: 20090730
  Transmission Date: 20100115
  Serious: Yes (Other)
  Sender: FDA-Public Use
  Company Number: PHHY2009CA27958

PATIENT
  Sex: Male

DRUGS (2)
  1. SANDOSTATIN LAR [Suspect]
     Indication: METASTATIC CARCINOID TUMOUR
     Dosage: 40 MG EVERY 4 WEEKS
     Route: 030
     Dates: start: 20070427
  2. SANDOSTATIN LAR [Suspect]
     Dosage: 40 MG EVERY 3 WEEKS
     Route: 030

REACTIONS (2)
  - CACHEXIA [None]
  - MUSCLE ATROPHY [None]
